FAERS Safety Report 5167850-8 (Version None)
Quarter: 2006Q4

REPORT INFORMATION
  Report Type: 
  Country: None (occurrence: None)
  Receive Date: 20061208
  Receipt Date: 20060516
  Transmission Date: 20070319
  Serious: Yes (Hospitalization, Other)
  Sender: FDA-Public Use
  Company Number: PHEH2006US06375

PATIENT
  Age: 54 Year
  Sex: Female
  Weight: 97.505 kg

DRUGS (16)
  1. LEVOXYL [Concomitant]
  2. RISPERDAL [Concomitant]
  3. WELLBUTRIN [Concomitant]
  4. INSULIN [Concomitant]
  5. WELLBUTRIN XL [Concomitant]
  6. ATIVAN [Concomitant]
     Indication: ANXIETY
     Dosage: 0.5 MG, TID
     Route: 048
  7. LOVENOX [Concomitant]
  8. COGENTIN [Concomitant]
     Dosage: 1 MG, BID
  9. AMBIEN [Concomitant]
  10. PRAVACHOL [Concomitant]
  11. COZAAR [Concomitant]
  12. CLOZARIL [Suspect]
     Indication: SCHIZOPHRENIA
     Dosage: 200 MG, BID
     Route: 048
     Dates: start: 20060504, end: 20060801
  13. CLOZARIL [Suspect]
     Dosage: 350 MG, QD
     Route: 048
     Dates: start: 20061013
  14. PROTONIX [Concomitant]
     Dosage: 150 MG, QD
  15. BUPROPION HCL [Concomitant]
     Indication: DEPRESSION
  16. FLUVOXAMINE MALEATE [Concomitant]

REACTIONS (9)
  - DIZZINESS [None]
  - LETHARGY [None]
  - MONOCYTE COUNT INCREASED [None]
  - NEUTROPHIL COUNT INCREASED [None]
  - PLATELET COUNT INCREASED [None]
  - PYREXIA [None]
  - SOMNOLENCE [None]
  - UPPER RESPIRATORY TRACT INFECTION [None]
  - WHITE BLOOD CELL COUNT INCREASED [None]
